FAERS Safety Report 17169445 (Version 1)
Quarter: 2019Q4

REPORT INFORMATION
  Report Type: Report from Study
  Country: DE (occurrence: DE)
  Receive Date: 20191218
  Receipt Date: 20191218
  Transmission Date: 20200122
  Serious: Yes (Hospitalization)
  Sender: FDA-Public Use
  Company Number: NVSC2019DE072746

PATIENT
  Sex: Male

DRUGS (13)
  1. COSENTYX [Suspect]
     Active Substance: SECUKINUMAB
     Dosage: 150 MG (PREFILLED PEN)
     Route: 065
     Dates: start: 20190321
  2. COSENTYX [Suspect]
     Active Substance: SECUKINUMAB
     Dosage: 150 MG (PREFILLED PEN)
     Route: 065
     Dates: start: 20190314
  3. COSENTYX [Suspect]
     Active Substance: SECUKINUMAB
     Dosage: 150 MG (PREFILLED PEN)
     Route: 065
     Dates: start: 20191116
  4. COSENTYX [Suspect]
     Active Substance: SECUKINUMAB
     Dosage: 150 MG (PREFILLED PEN)
     Route: 065
     Dates: start: 20190516
  5. COSENTYX [Suspect]
     Active Substance: SECUKINUMAB
     Dosage: 150 MG (PREFILLED PEN)
     Route: 065
     Dates: start: 20190816
  6. COSENTYX [Suspect]
     Active Substance: SECUKINUMAB
     Indication: ANKYLOSING SPONDYLITIS
     Dosage: 150 MG (PREFILLED PEN)
     Route: 065
     Dates: start: 20190129
  7. COSENTYX [Suspect]
     Active Substance: SECUKINUMAB
     Dosage: 150 MG (PREFILLED PEN)
     Route: 065
     Dates: start: 20190307
  8. COSENTYX [Suspect]
     Active Substance: SECUKINUMAB
     Dosage: 150 MG (PREFILLED PEN)
     Route: 065
     Dates: start: 20190418
  9. COSENTYX [Suspect]
     Active Substance: SECUKINUMAB
     Dosage: 150 MG (PREFILLED PEN)
     Route: 065
     Dates: start: 20190716
  10. COSENTYX [Suspect]
     Active Substance: SECUKINUMAB
     Dosage: 150 MG (PREFILLED PEN)
     Route: 065
     Dates: start: 20190616
  11. COSENTYX [Suspect]
     Active Substance: SECUKINUMAB
     Dosage: 150 MG (PREFILLED PEN)
     Route: 065
     Dates: start: 20190205
  12. COSENTYX [Suspect]
     Active Substance: SECUKINUMAB
     Dosage: 150 MG (PREFILLED PEN)
     Route: 065
     Dates: start: 20191016
  13. COSENTYX [Suspect]
     Active Substance: SECUKINUMAB
     Dosage: 150 MG (PREFILLED PEN)
     Route: 065
     Dates: start: 20190916

REACTIONS (1)
  - Campylobacter gastroenteritis [Recovered/Resolved]

NARRATIVE: CASE EVENT DATE: 20191101
